FAERS Safety Report 12195427 (Version 2)
Quarter: 2016Q1

REPORT INFORMATION
  Report Type: Spontaneous
  Country: JP (occurrence: JP)
  Receive Date: 20160321
  Receipt Date: 20160324
  Transmission Date: 20160526
  Serious: Yes (Life-Threatening, Hospitalization)
  Sender: FDA-Public Use
  Company Number: JP-PFIZER INC-2016016449

PATIENT
  Age: 68 Year
  Sex: Female
  Weight: 40 kg

DRUGS (12)
  1. DALACIN [Concomitant]
     Active Substance: CLINDAMYCIN\CLINDAMYCIN PHOSPHATE
     Indication: LIVER ABSCESS
     Dosage: UNK
     Dates: start: 20151212
  2. ZOSYN [Suspect]
     Active Substance: PIPERACILLIN SODIUM\TAZOBACTAM SODIUM
     Indication: LIVER ABSCESS
     Dosage: 4.5 G, 3X/DAY
     Route: 041
     Dates: start: 20151212, end: 20160108
  3. LANSOPRAZOLE. [Concomitant]
     Active Substance: LANSOPRAZOLE
     Indication: PROPHYLAXIS AGAINST GASTROINTESTINAL ULCER
     Dosage: 30 MG, DAILY
     Route: 048
     Dates: start: 20151230, end: 20160105
  4. LASIX [Concomitant]
     Active Substance: FUROSEMIDE
     Indication: CENTRAL VENOUS PRESSURE INCREASED
     Dosage: 20 MG, DAILY
     Route: 042
     Dates: end: 20160104
  5. PANTOL [Concomitant]
     Active Substance: DEXPANTHENOL
     Indication: ILEUS PARALYTIC
     Dosage: 500 MG, DAILY
     Route: 041
     Dates: start: 20151225, end: 20160105
  6. HUMULIN R [Concomitant]
     Active Substance: INSULIN HUMAN
     Indication: HYPERGLYCAEMIA
     Dosage: UNK
     Route: 041
     Dates: start: 20151215, end: 20160121
  7. HEPARIN SODIUM. [Concomitant]
     Active Substance: HEPARIN SODIUM
     Indication: THROMBOSIS PROPHYLAXIS
     Dosage: 10000 IU, DAILY
     Route: 041
     Dates: end: 20160103
  8. BIOFERMIN R [Concomitant]
     Active Substance: BACILLUS SUBTILIS\LACTOBACILLUS ACIDOPHILUS\STREPTOCOCCUS FAECAIS
     Indication: PROPHYLAXIS
     Dosage: 3.0 G, DAILY
     Route: 048
     Dates: start: 20151218
  9. MUCODYNE-DS [Concomitant]
     Active Substance: CARBOCYSTEINE
     Indication: PROPHYLAXIS
     Dosage: 1500 MG, DAILY
     Route: 048
     Dates: start: 20151224, end: 20160106
  10. ELNEOPA NO.2 [Concomitant]
     Active Substance: AMINO ACIDS\CARBOHYDRATES\ELECTROLYTES NOS\VITAMINS
     Indication: NUTRITIONAL SUPPLEMENTATION
     Dosage: 1500 ML, DAILY
     Route: 041
     Dates: start: 20151222, end: 20160118
  11. MOSAPRIDE CITRATE [Concomitant]
     Active Substance: MOSAPRIDE CITRATE
     Indication: GASTROINTESTINAL HYPOMOTILITY
     Dosage: 15 MG, DAILY
     Route: 048
     Dates: start: 20151224, end: 20160105
  12. MIYA-BM [Concomitant]
     Active Substance: CLOSTRIDIUM BUTYRICUM SPORES STRAIN M-55
     Indication: PROPHYLAXIS
     Dosage: 3.0 G, DAILY
     Route: 048
     Dates: start: 20151218

REACTIONS (2)
  - Drug reaction with eosinophilia and systemic symptoms [Recovered/Resolved]
  - Disseminated intravascular coagulation [Recovered/Resolved]

NARRATIVE: CASE EVENT DATE: 20160102
